FAERS Safety Report 7955041-4 (Version None)
Quarter: 2011Q4

REPORT INFORMATION
  Report Type: 
  Country: None (occurrence: None)
  Receive Date: 20111202
  Receipt Date: 20111125
  Transmission Date: 20120403
  Serious: Yes (Hospitalization, Other)
  Sender: FDA-Public Use
  Company Number: CN-PFIZER INC-2011293906

PATIENT
  Age: 58 Year
  Sex: Female

DRUGS (9)
  1. IMDUR [Concomitant]
     Route: 048
  2. LIPITOR [Suspect]
     Indication: CORONARY ARTERY DISEASE
     Dosage: 40MG
     Route: 048
     Dates: start: 20110401
  3. DIAMICRON [Concomitant]
     Indication: DIABETES MELLITUS
     Dosage: 2 TABLETS A DAY
     Route: 048
  4. METOPROLOL TARTRATE [Concomitant]
     Route: 048
  5. FENOFIBRATE [Suspect]
     Indication: CORONARY ARTERY DISEASE
  6. LIPITOR [Suspect]
     Indication: CARDIAC FAILURE
     Dosage: 20MG
     Route: 048
     Dates: start: 20100101
  7. FENOFIBRATE [Suspect]
     Indication: CARDIAC FAILURE
     Dosage: UNK
     Dates: start: 20111023, end: 20111027
  8. PLENDIL [Concomitant]
     Indication: HYPERTENSION
     Route: 048
  9. METFORMIN [Concomitant]
     Indication: DIABETES MELLITUS
     Dosage: ONE TABLET A DAY
     Route: 048
     Dates: start: 20110101

REACTIONS (6)
  - ALPHA HYDROXYBUTYRATE DEHYDROGENASE INCREASED [None]
  - DRUG INEFFECTIVE [None]
  - ASPARTATE AMINOTRANSFERASE INCREASED [None]
  - ALANINE AMINOTRANSFERASE INCREASED [None]
  - RHABDOMYOLYSIS [None]
  - BLOOD LACTATE DEHYDROGENASE INCREASED [None]
